FAERS Safety Report 9903038 (Version 1)
Quarter: 2014Q1

REPORT INFORMATION
  Report Type: Spontaneous
  Country: US (occurrence: US)
  Receive Date: 20140217
  Receipt Date: 20140217
  Transmission Date: 20141002
  Serious: Yes (Other)
  Sender: FDA-Public Use
  Company Number: PHEH2014US002813

PATIENT
  Sex: Female

DRUGS (4)
  1. LOTREL [Suspect]
     Dosage: UNK UKN, UNK
  2. HYDROCHLOROTHIAZIDE [Suspect]
     Dosage: UNK UKN, UNK
  3. PROCARDIA [Suspect]
     Dosage: UNK UKN, UNK
  4. NORVASC [Suspect]
     Dosage: UNK UKN, UNK

REACTIONS (12)
  - Cardiomegaly [Unknown]
  - Swollen tongue [Unknown]
  - Lip swelling [Unknown]
  - Blood pressure increased [Unknown]
  - Faecal incontinence [Unknown]
  - Fall [Unknown]
  - Limb injury [Unknown]
  - Heart rate decreased [Unknown]
  - Pruritus [Unknown]
  - Oedema peripheral [Unknown]
  - Dizziness [Unknown]
  - Blood pressure inadequately controlled [Unknown]
